FAERS Safety Report 11812986 (Version 1)
Quarter: 2015Q4

REPORT INFORMATION
  Report Type: Spontaneous
  Country: US (occurrence: US)
  Receive Date: 20151209
  Receipt Date: 20151209
  Transmission Date: 20160305
  Serious: No
  Sender: FDA-Public Use
  Company Number: US-SUN PHARMACEUTICAL INDUSTRIES LTD-2015US-100602

PATIENT
  Age: 58 Year
  Sex: Female
  Weight: 86 kg

DRUGS (9)
  1. FENOFIBRATE. [Suspect]
     Active Substance: FENOFIBRATE
     Indication: BLOOD CHOLESTEROL INCREASED
     Dosage: UNK
     Route: 065
     Dates: start: 20150423
  2. GEMFIBROZIL. [Suspect]
     Active Substance: GEMFIBROZIL
     Indication: BLOOD TRIGLYCERIDES INCREASED
  3. FENOFIBRATE. [Suspect]
     Active Substance: FENOFIBRATE
     Indication: BLOOD TRIGLYCERIDES INCREASED
  4. ATORVASTATIN [Suspect]
     Active Substance: ATORVASTATIN
     Indication: BLOOD TRIGLYCERIDES INCREASED
  5. ATORVASTATIN [Suspect]
     Active Substance: ATORVASTATIN
     Indication: BLOOD CHOLESTEROL INCREASED
     Dosage: UNK
     Route: 065
  6. ATORVASTATIN [Suspect]
     Active Substance: ATORVASTATIN
     Indication: LOW DENSITY LIPOPROTEIN INCREASED
  7. GEMFIBROZIL. [Suspect]
     Active Substance: GEMFIBROZIL
     Indication: BLOOD CHOLESTEROL INCREASED
     Dosage: 600 MG, BID
     Route: 065
     Dates: start: 20150423
  8. FENOFIBRATE. [Suspect]
     Active Substance: FENOFIBRATE
     Indication: LOW DENSITY LIPOPROTEIN INCREASED
  9. GEMFIBROZIL. [Suspect]
     Active Substance: GEMFIBROZIL
     Indication: LOW DENSITY LIPOPROTEIN INCREASED

REACTIONS (7)
  - Rash [Not Recovered/Not Resolved]
  - Lip dry [Unknown]
  - Hypoaesthesia oral [Not Recovered/Not Resolved]
  - Swollen tongue [Not Recovered/Not Resolved]
  - Blood triglycerides increased [Unknown]
  - Drug ineffective [Unknown]
  - Face oedema [Not Recovered/Not Resolved]

NARRATIVE: CASE EVENT DATE: 20150423
